FAERS Safety Report 26094518 (Version 1)
Quarter: 2025Q4

REPORT INFORMATION
  Report Type: Spontaneous
  Country: IL (occurrence: IL)
  Receive Date: 20251126
  Receipt Date: 20251126
  Transmission Date: 20260118
  Serious: Yes (Other)
  Sender: NOVO NORDISK
  Company Number: IL-NOVOPROD-1568136

PATIENT
  Sex: Male

DRUGS (1)
  1. WEGOVY [Suspect]
     Active Substance: SEMAGLUTIDE
     Indication: Product used for unknown indication
     Dosage: 2.4 MG, QW(TWICE A WEEK BY CLICKS)
     Route: 058

REACTIONS (2)
  - Stent placement [Unknown]
  - Off label use [Unknown]

NARRATIVE: CASE EVENT DATE: 20250701
